FAERS Safety Report 10444317 (Version 1)
Quarter: 2014Q3

REPORT INFORMATION
  Report Type: Spontaneous
  Country: US (occurrence: None)
  Receive Date: 20140909
  Receipt Date: 20140909
  Transmission Date: 20150326
  Serious: Yes (Death)
  Sender: FDA-Public Use
  Company Number: None

PATIENT
  Age: 41 Year
  Sex: Male
  Weight: 86.18 kg

DRUGS (1)
  1. CHANTIX [Suspect]
     Active Substance: VARENICLINE TARTRATE
     Indication: TOBACCO USER

REACTIONS (7)
  - Memory impairment [None]
  - Anger [None]
  - Head injury [None]
  - Abnormal behaviour [None]
  - Gun shot wound [None]
  - Depression [None]
  - Completed suicide [None]

NARRATIVE: CASE EVENT DATE: 20140827
